FAERS Safety Report 23634547 (Version 2)
Quarter: 2024Q2

REPORT INFORMATION
  Report Type: Spontaneous
  Country: US (occurrence: US)
  Receive Date: 20240315
  Receipt Date: 20240508
  Transmission Date: 20240716
  Serious: No
  Sender: FDA-Public Use
  Company Number: US-SA-SAC20240307001231

PATIENT
  Age: 59 Year
  Sex: Female

DRUGS (1)
  1. DUPIXENT [Suspect]
     Active Substance: DUPILUMAB
     Indication: Dermatitis atopic
     Dosage: 300 MG, QOW
     Route: 058
     Dates: start: 20220223

REACTIONS (7)
  - Sleep disorder due to a general medical condition [Unknown]
  - Dry skin [Unknown]
  - Skin burning sensation [Unknown]
  - Skin exfoliation [Unknown]
  - Pruritus [Unknown]
  - Product dose omission issue [Unknown]
  - Rash [Unknown]
